FAERS Safety Report 8905377 (Version 1)
Quarter: 2012Q4

REPORT INFORMATION
  Report Type: 
  Country: US (occurrence: US)
  Receive Date: 20121112
  Receipt Date: 20121112
  Transmission Date: 20130627
  Serious: Yes (Other)
  Sender: FDA-Public Use
  Company Number: US-BAYER-2012-116605

PATIENT
  Age: 36 Year
  Sex: Female
  Weight: 102 kg

DRUGS (8)
  1. YASMIN [Suspect]
  2. TRICOR [Concomitant]
     Dosage: 145 mg, UNK
  3. INDERAL LA [Concomitant]
     Dosage: 60 mg, UNK
  4. WELLBUTRIN XL [Concomitant]
     Dosage: 150 mg, UNK
  5. ZOLOFT [Concomitant]
     Dosage: 100 mg, UNK
  6. MOTRIN [Concomitant]
  7. WELLBUTRIN [Concomitant]
  8. ZYRTEC [Concomitant]

REACTIONS (5)
  - Pelvic venous thrombosis [None]
  - Deep vein thrombosis [None]
  - Thrombophlebitis superficial [None]
  - Pulmonary embolism [None]
  - Vena cava thrombosis [None]
